FAERS Safety Report 7575518-3 (Version None)
Quarter: 2011Q2

REPORT INFORMATION
  Report Type: 
  Country: None (occurrence: None)
  Receive Date: 20110627
  Receipt Date: 20110617
  Transmission Date: 20111010
  Serious: Yes (Other)
  Sender: FDA-Public Use
  Company Number: PHHY2011US54293

PATIENT
  Sex: Female

DRUGS (7)
  1. GLUCOSAMINE W/CHONDROITIN [Concomitant]
     Dosage: UNK UKN, UNK
  2. LO/OVRAL [Concomitant]
     Dosage: UNK UKN, UNK
  3. MULTI-VITAMINS [Concomitant]
     Dosage: UNK UKN, UNK
  4. ZANAFLEX [Concomitant]
     Dosage: UNK UKN, UNK
  5. DEXLANSOPRAZOLE [Concomitant]
     Dosage: UNK UKN, UNK
  6. VITAMIN D [Concomitant]
     Dosage: 100 IU, UNK
  7. GILENYA [Suspect]
     Dosage: 0.5 MG, QD
     Route: 048
     Dates: start: 20100901

REACTIONS (6)
  - RASH [None]
  - EAR PAIN [None]
  - MALAISE [None]
  - BASAL CELL CARCINOMA [None]
  - PAIN IN JAW [None]
  - INFLUENZA [None]
